FAERS Safety Report 23152880 (Version 1)
Quarter: 2023Q4

REPORT INFORMATION
  Report Type: Spontaneous
  Country: HR (occurrence: HR)
  Receive Date: 20231107
  Receipt Date: 20231107
  Transmission Date: 20240110
  Serious: Yes (Other)
  Sender: FDA-Public Use
  Company Number: None

PATIENT
  Age: 26 Year
  Sex: Female
  Weight: 80 kg

DRUGS (4)
  1. KETOPROFEN [Suspect]
     Active Substance: KETOPROFEN
     Dosage: 1500 MG, QD
     Route: 048
     Dates: start: 20230922, end: 20230922
  2. ZOLPIDEM TARTRATE [Suspect]
     Active Substance: ZOLPIDEM TARTRATE
     Dosage: 200 MG, QD
     Route: 048
     Dates: start: 20230922, end: 20230922
  3. LAMOTRIGINE [Suspect]
     Active Substance: LAMOTRIGINE
     Dosage: 4.2 G, QD
     Route: 048
     Dates: start: 20230922, end: 20230922
  4. VENLAFAXINE [Suspect]
     Active Substance: VENLAFAXINE HYDROCHLORIDE
     Dosage: 900 MG, QD
     Route: 048
     Dates: start: 20230922, end: 20230922

REACTIONS (3)
  - Suicide attempt [Unknown]
  - Intentional overdose [Unknown]
  - Somnolence [Unknown]

NARRATIVE: CASE EVENT DATE: 20230922
